FAERS Safety Report 15022092 (Version 2)
Quarter: 2020Q3

REPORT INFORMATION
  Report Type: Report from Study
  Country: US (occurrence: US)
  Receive Date: 20180618
  Receipt Date: 20200702
  Transmission Date: 20201102
  Serious: No
  Sender: FDA-Public Use
  Company Number: US-SA-2018SA157223

PATIENT

DRUGS (5)
  1. IRON [Concomitant]
     Active Substance: IRON
  2. ZINC. [Concomitant]
     Active Substance: ZINC
  3. TERIFLUNOMIDE. [Suspect]
     Active Substance: TERIFLUNOMIDE
     Indication: MULTIPLE SCLEROSIS
     Dosage: 14 MG, QD
     Route: 048
     Dates: start: 201802
  4. MULTIVITAMINS [VITAMINS NOS] [Concomitant]
     Active Substance: VITAMINS
  5. VITAMIN C [Concomitant]
     Active Substance: ASCORBIC ACID

REACTIONS (5)
  - Hypertension [Unknown]
  - Hepatitis B antibody positive [Unknown]
  - Diarrhoea [Unknown]
  - Throat clearing [Unknown]
  - Vitamin D decreased [Unknown]
